FAERS Safety Report 6748409-5 (Version None)
Quarter: 2010Q2

REPORT INFORMATION
  Report Type: 
  Country: None (occurrence: None)
  Receive Date: 20100525
  Receipt Date: 20091102
  Transmission Date: 20101027
  Serious: Yes (Hospitalization)
  Sender: FDA-Public Use
  Company Number: WAES 0911USA00196

PATIENT
  Sex: Female

DRUGS (1)
  1. COZAAR [Suspect]
     Indication: HYPERTENSION
     Dosage: 100 MG/DAILY/PO
     Route: 048
     Dates: start: 20081101, end: 20091101

REACTIONS (7)
  - ARTHRITIS [None]
  - CHEST DISCOMFORT [None]
  - CONSTIPATION [None]
  - MEMORY IMPAIRMENT [None]
  - NOCTURIA [None]
  - POLLAKIURIA [None]
  - WRONG TECHNIQUE IN DRUG USAGE PROCESS [None]
